FAERS Safety Report 11058479 (Version 1)
Quarter: 2015Q2

REPORT INFORMATION
  Report Type: Spontaneous
  Country: CM (occurrence: None)
  Receive Date: 20150421
  Receipt Date: 20150421
  Transmission Date: 20150821
  Serious: Yes (Other)
  Sender: FDA-Public Use
  Company Number: CM2015GSK046410

PATIENT
  Age: 30 Year
  Sex: Male

DRUGS (7)
  1. EFAVIRENZ (EFAVIRENZ) UNKNOWN [Suspect]
     Active Substance: EFAVIRENZ
     Indication: HIV INFECTION
     Dates: start: 20130119
  2. RIFAMPICIN (RIFAMPICIN) [Suspect]
     Active Substance: RIFAMPIN
     Indication: MYCOBACTERIUM ULCERANS INFECTION
     Route: 048
     Dates: start: 20130109, end: 20130303
  3. ZIDOVUDINE (ZIDOVUDINE) UNKNOWN) [Suspect]
     Active Substance: ZIDOVUDINE
     Indication: HIV INFECTION
     Dates: start: 20130119
  4. CLARITHROMYCIN (CLARITHROMYCIN) UNKNOWN [Suspect]
     Active Substance: CLARITHROMYCIN
     Indication: MYCOBACTERIUM ULCERANS INFECTION
  5. STREPTOMYCIN [Suspect]
     Active Substance: STREPTOMYCIN\STREPTOMYCIN SULFATE
     Indication: MYCOBACTERIUM ULCERANS INFECTION
     Route: 030
     Dates: start: 20130109, end: 20130303
  6. LAMIVUDINE (LAMIVUDINE) UNKNOWN [Suspect]
     Active Substance: LAMIVUDINE
     Indication: HIV INFECTION
     Dates: start: 20130119
  7. COTRIMOXAZOLE [Suspect]
     Active Substance: SULFAMETHOXAZOLE\TRIMETHOPRIM
     Indication: PRODUCT USED FOR UNKNOWN INDICATION
     Dates: start: 20130119, end: 20130303

REACTIONS (11)
  - Rash pustular [None]
  - Oedema peripheral [None]
  - Paradoxical drug reaction [None]
  - Hypersensitivity [None]
  - Ulcer [None]
  - Skin graft [None]
  - Pyrexia [None]
  - Wound necrosis [None]
  - Pruritus generalised [None]
  - Skin lesion [None]
  - Soft tissue inflammation [None]
